FAERS Safety Report 8735358 (Version 2)
Quarter: 2012Q4

REPORT INFORMATION
  Report Type: 
  Country: US (occurrence: US)
  Receive Date: 20120822
  Receipt Date: 20121022
  Transmission Date: 20130627
  Serious: Yes (Hospitalization)
  Sender: FDA-Public Use
  Company Number: US-BIOGENIDEC-2012BI032111

PATIENT
  Age: 50 Year
  Sex: Male

DRUGS (11)
  1. TYSABRI [Suspect]
     Indication: MULTIPLE SCLEROSIS
     Route: 042
     Dates: start: 20110502
  2. AVONEX [Concomitant]
     Indication: MULTIPLE SCLEROSIS
     Route: 030
     Dates: start: 20000804
  3. CYMBALTA [Concomitant]
     Indication: PAIN
  4. FENTANYL [Concomitant]
     Indication: PAIN
  5. PERCOCET [Concomitant]
     Indication: PAIN
  6. GABAPENTIN [Concomitant]
     Indication: PAIN
  7. FIORICET [Concomitant]
     Indication: MIGRAINE
  8. NUVIGIL [Concomitant]
     Indication: FATIGUE
  9. TESTOSTERONE [Concomitant]
     Indication: ERECTILE DYSFUNCTION
  10. VIAGRA [Concomitant]
     Indication: ERECTILE DYSFUNCTION
  11. LISINOPRIL [Concomitant]
     Indication: HYPERTENSION

REACTIONS (3)
  - Vomiting [Recovered/Resolved]
  - Pyrexia [Recovered/Resolved]
  - Monoclonal gammopathy [Unknown]
